FAERS Safety Report 6647782-6 (Version None)
Quarter: 2010Q1

REPORT INFORMATION
  Report Type: 
  Country: None (occurrence: None)
  Receive Date: 20100324
  Receipt Date: 20100316
  Transmission Date: 20100710
  Serious: Yes (Hospitalization)
  Sender: FDA-Public Use
  Company Number: US-BIOGENIDEC-2010BI008920

PATIENT
  Age: 16 Year
  Sex: Male

DRUGS (2)
  1. AVONEX [Suspect]
     Indication: MULTIPLE SCLEROSIS
     Route: 030
     Dates: start: 20090303, end: 20090317
  2. AVONEX [Suspect]
     Route: 030
     Dates: start: 20090607

REACTIONS (2)
  - BALANCE DISORDER [None]
  - MULTIPLE SCLEROSIS [None]
